FAERS Safety Report 4616830-7 (Version None)
Quarter: 2005Q1

REPORT INFORMATION
  Report Type: 
  Country: None (occurrence: None)
  Receive Date: 20050321
  Receipt Date: 20050304
  Transmission Date: 20050727
  Serious: Yes (Hospitalization)
  Sender: FDA-Public Use
  Company Number: 8008849

PATIENT
  Age: 31 Year
  Sex: Female
  Weight: 60 kg

DRUGS (18)
  1. KEPPRA [Suspect]
     Indication: EPILEPSY
     Dosage: 1 G 2/D PO
     Route: 048
     Dates: start: 20041220, end: 20050111
  2. KEPPRA [Suspect]
     Indication: EPILEPSY
     Dosage: 500 MG 2/D PO
     Route: 048
     Dates: start: 20050205, end: 20050206
  3. KEPPRA [Suspect]
     Indication: EPILEPSY
     Dosage: 500 MG 3/D PO
     Route: 048
     Dates: start: 20050207
  4. RIVOTRIL [Suspect]
     Indication: EPILEPSY
     Dosage: 1 DF 1/D
     Dates: start: 19900101
  5. RIVOTRIL [Suspect]
     Indication: EPILEPSY
     Dosage: 1 G 1/D IVB
     Route: 040
     Dates: start: 20041223, end: 20041223
  6. RIVOTRIL [Suspect]
     Indication: EPILEPSY
     Dosage: 100 GTT PO
     Route: 048
  7. SPECIAFOLDINE [Suspect]
     Dates: start: 20040101
  8. TEGRETOL [Suspect]
     Indication: EPILEPSY
     Dosage: 1000 MG/D
     Dates: start: 19900101, end: 20050110
  9. DI-HYDAN [Suspect]
     Indication: EPILEPSY
     Dosage: 300 MG /D
     Dates: start: 19900101, end: 20050101
  10. GADOLINIUM [Concomitant]
  11. NESDONAL [Concomitant]
  12. XYLOCAINE [Concomitant]
  13. ORBENINE [Concomitant]
  14. GENTALLINE [Concomitant]
  15. DEPAKENE [Concomitant]
  16. CORTICOID [Concomitant]
  17. DILANTIN [Concomitant]
  18. PRODILANTIN [Concomitant]

REACTIONS (16)
  - ABDOMINAL DISTENSION [None]
  - AGITATION [None]
  - CONDITION AGGRAVATED [None]
  - CONSTIPATION [None]
  - DRUG EXPOSURE DURING PREGNANCY [None]
  - GRAND MAL CONVULSION [None]
  - HYPOXIA [None]
  - INTRA-UTERINE DEATH [None]
  - LARYNGEAL OEDEMA [None]
  - LUNG DISORDER [None]
  - NERVOUS SYSTEM DISORDER [None]
  - OBSTRUCTIVE AIRWAYS DISORDER [None]
  - PETIT MAL EPILEPSY [None]
  - QUADRIPARESIS [None]
  - STAPHYLOCOCCAL INFECTION [None]
  - TREATMENT NONCOMPLIANCE [None]
